FAERS Safety Report 8275830-9 (Version None)
Quarter: 2012Q2

REPORT INFORMATION
  Report Type: 
  Country: None (occurrence: None)
  Receive Date: 20120410
  Receipt Date: 20120410
  Transmission Date: 20120825
  Serious: Yes (Disabling, Other)
  Sender: FDA-Public Use
  Company Number: None

PATIENT
  Age: 37 Year
  Sex: Female
  Weight: 61.2356 kg

DRUGS (1)
  1. CREST 3 D TOOTHPASTE [Suspect]
     Indication: DENTAL CARE
     Dosage: TOOTHBRUST AMOUNT 2 TIMES A DAY DENTAL
     Route: 004
     Dates: start: 20120303, end: 20120316

REACTIONS (1)
  - APPLICATION SITE BURN [None]
